FAERS Safety Report 7376516-5 (Version None)
Quarter: 2011Q1

REPORT INFORMATION
  Report Type: 
  Country: None (occurrence: None)
  Receive Date: 20110325
  Receipt Date: 20110314
  Transmission Date: 20110831
  Serious: Yes (Death, Other)
  Sender: FDA-Public Use
  Company Number: JP-CELGENEUS-087-21880-10102476

PATIENT
  Sex: Female

DRUGS (18)
  1. REVLIMID [Suspect]
     Indication: MULTIPLE MYELOMA
     Dosage: 15 MILLIGRAM
     Route: 048
     Dates: start: 20101007, end: 20101021
  2. LENADEX [Suspect]
     Dosage: 40 MILLIGRAM
     Route: 048
     Dates: start: 20101203, end: 20101221
  3. VOLTAREN [Concomitant]
     Indication: MULTIPLE MYELOMA
     Dosage: 75 MILLIGRAM
     Route: 048
     Dates: start: 20100830, end: 20101020
  4. TAKEPRON [Concomitant]
     Indication: PROPHYLAXIS
     Dosage: 15 MILLIGRAM
     Route: 048
     Dates: start: 20101014, end: 20101221
  5. LENADEX [Suspect]
     Dosage: 40 MILLIGRAM
     Route: 048
     Dates: start: 20101023, end: 20101026
  6. MUCOSTA [Concomitant]
     Indication: PROPHYLAXIS
     Dosage: 200 MILLIGRAM
     Route: 048
     Dates: start: 20100830, end: 20101103
  7. ATELEC [Concomitant]
     Indication: HYPERTENSION
     Dosage: 5 MILLIGRAM
     Route: 048
     Dates: start: 20101005, end: 20101014
  8. BLOPRESS [Concomitant]
     Indication: HYPERTENSION
     Dosage: 8 MILLIGRAM
     Route: 048
     Dates: start: 20101005, end: 20101014
  9. REVLIMID [Suspect]
     Dosage: 25 MILLIGRAM
     Route: 048
     Dates: start: 20101202, end: 20101221
  10. LENADEX [Suspect]
     Indication: MULTIPLE MYELOMA
     Dosage: 40 MILLIGRAM
     Route: 048
     Dates: start: 20101015, end: 20101018
  11. KADIAN [Suspect]
     Indication: MULTIPLE MYELOMA
     Dosage: 20 MILLIGRAM
     Route: 048
     Dates: start: 20100915, end: 20101027
  12. ABILIFY [Concomitant]
     Dosage: 3 MILLIGRAM
     Route: 048
     Dates: start: 20101020, end: 20101122
  13. CALONAL [Concomitant]
     Indication: PROPHYLAXIS
     Dosage: 400 MILLIGRAM
     Route: 048
     Dates: start: 20101023, end: 20101023
  14. INDOMETHACIN SODIUM [Concomitant]
     Dosage: 25 GRAM
     Route: 041
     Dates: start: 20101109, end: 20101109
  15. REVLIMID [Suspect]
     Dosage: 15 MILLIGRAM
     Route: 048
     Dates: start: 20101104, end: 20101124
  16. LENADEX [Suspect]
     Dosage: 40 MILLIGRAM
     Route: 048
     Dates: start: 20101105, end: 20101124
  17. TECIPUL [Concomitant]
     Indication: MULTIPLE MYELOMA
     Dosage: 1 MILLIGRAM
     Route: 048
     Dates: start: 20100910, end: 20101103
  18. MAGLAX [Concomitant]
     Dosage: 1980 MILLIGRAM
     Route: 048
     Dates: start: 20100302, end: 20101221

REACTIONS (7)
  - HAEMOGLOBIN DECREASED [None]
  - PYREXIA [None]
  - NEUTROPHIL COUNT DECREASED [None]
  - PNEUMONIA [None]
  - SEPSIS [None]
  - NEUTROPENIA [None]
  - DECREASED APPETITE [None]
